FAERS Safety Report 5903081-9 (Version None)
Quarter: 2008Q3

REPORT INFORMATION
  Report Type: 
  Country: None (occurrence: None)
  Receive Date: 20080930
  Receipt Date: 20080923
  Transmission Date: 20090109
  Serious: No
  Sender: FDA-Public Use
  Company Number: BR-ROCHE-586453

PATIENT
  Sex: Female
  Weight: 54 kg

DRUGS (2)
  1. ROACUTAN [Suspect]
     Indication: ACNE
     Route: 048
     Dates: start: 20071001
  2. ROACUTAN [Suspect]
     Route: 048
     Dates: start: 20071201

REACTIONS (2)
  - NO ADVERSE EVENT [None]
  - PREGNANCY [None]
